FAERS Safety Report 21946606 (Version 3)
Quarter: 2023Q1

REPORT INFORMATION
  Report Type: Spontaneous
  Country: US (occurrence: US)
  Receive Date: 20230202
  Receipt Date: 20230220
  Transmission Date: 20230418
  Serious: No
  Sender: FDA-Public Use
  Company Number: US-BIOVITRUM-2023US01635

PATIENT
  Age: 49 Year
  Sex: Female

DRUGS (2)
  1. KINERET [Suspect]
     Active Substance: ANAKINRA
     Indication: Gouty tophus
     Dates: start: 201909
  2. KINERET [Suspect]
     Active Substance: ANAKINRA
     Dates: start: 20211123

REACTIONS (9)
  - Pain [Unknown]
  - Gait inability [Unknown]
  - Peripheral swelling [Unknown]
  - Walking aid user [Unknown]
  - Erythema [Unknown]
  - Gout [Unknown]
  - Product use issue [Unknown]
  - Product dose omission issue [Unknown]
  - Off label use [Unknown]

NARRATIVE: CASE EVENT DATE: 20190901
